FAERS Safety Report 13258268 (Version 1)
Quarter: 2017Q1

REPORT INFORMATION
  Report Type: Spontaneous
  Country: AU (occurrence: AU)
  Receive Date: 20170221
  Receipt Date: 20170221
  Transmission Date: 20170428
  Serious: Yes (Death, Hospitalization)
  Sender: FDA-Public Use
  Company Number: AU-IMPAX LABORATORIES, INC-2017-IPXL-00348

PATIENT
  Age: 20 Year
  Sex: Female

DRUGS (4)
  1. CHLOROQUINE PHOSPHATE. [Suspect]
     Active Substance: CHLOROQUINE PHOSPHATE
     Indication: MALARIA PROPHYLAXIS
     Dosage: 200 MG, TWO TABLETS WEEKLY
     Route: 065
  2. CHLOROQUINE PHOSPHATE. [Suspect]
     Active Substance: CHLOROQUINE PHOSPHATE
     Dosage: 200 MG, 45 TABLETS, SINGLE DOSE
     Route: 065
  3. DAPSONE W/PYRIMETHAMINE [Concomitant]
     Indication: MALARIA PROPHYLAXIS
     Dosage: UNK
     Route: 065
  4. CHLOROQUINE PHOSPHATE. [Suspect]
     Active Substance: CHLOROQUINE PHOSPHATE
     Dosage: 200 MG, TWO TABLETS DAILY
     Route: 065

REACTIONS (13)
  - Vomiting [Unknown]
  - Incorrect dose administered [Unknown]
  - Ventricular tachycardia [Fatal]
  - Throat tightness [Unknown]
  - Ventricular fibrillation [Fatal]
  - Viral myocarditis [Fatal]
  - Toxicity to various agents [Fatal]
  - Bundle branch block right [Fatal]
  - Diplopia [Unknown]
  - Hypoaesthesia [Unknown]
  - Seizure [Unknown]
  - Influenza like illness [Unknown]
  - Accidental overdose [Fatal]
